FAERS Safety Report 19224563 (Version 1)
Quarter: 2021Q2

REPORT INFORMATION
  Report Type: Spontaneous
  Country: US (occurrence: US)
  Receive Date: 20210505
  Receipt Date: 20210505
  Transmission Date: 20210717
  Serious: No
  Sender: FDA-Public Use
  Company Number: US-ROCHE-2699994

PATIENT
  Sex: Male

DRUGS (2)
  1. ESBRIET [Suspect]
     Active Substance: PIRFENIDONE
     Indication: IDIOPATHIC PULMONARY FIBROSIS
     Dosage: ONGOING: YES
     Route: 048
     Dates: start: 20200926
  2. ESBRIET [Suspect]
     Active Substance: PIRFENIDONE
     Dosage: TAKING TWO OF THE 267 MG TABLET THREE TIMES DAILY
     Route: 048

REACTIONS (1)
  - Muscle disorder [Unknown]
